FAERS Safety Report 18259505 (Version 1)
Quarter: 2020Q3

REPORT INFORMATION
  Report Type: Spontaneous
  Country: HR (occurrence: HR)
  Receive Date: 20200911
  Receipt Date: 20200911
  Transmission Date: 20201103
  Serious: Yes (Hospitalization, Other)
  Sender: FDA-Public Use
  Company Number: HR-009507513-2009HRV002526

PATIENT
  Sex: Male

DRUGS (1)
  1. KEYTRUDA [Suspect]
     Active Substance: PEMBROLIZUMAB
     Dosage: 1ST PEMBROLIZUMAB CYCLE (200 MG INTRAVENOUS)
     Route: 042
     Dates: start: 20190219

REACTIONS (4)
  - Diabetes mellitus [Unknown]
  - Inflammatory marker increased [Unknown]
  - Pyrexia [Unknown]
  - Pulmonary embolism [Unknown]

NARRATIVE: CASE EVENT DATE: 2019
